FAERS Safety Report 21344764 (Version 1)
Quarter: 2022Q3

REPORT INFORMATION
  Report Type: Spontaneous
  Country: CN (occurrence: None)
  Receive Date: 20220916
  Receipt Date: 20220916
  Transmission Date: 20221027
  Serious: Yes (Other)
  Sender: FDA-Public Use
  Company Number: 2022A317385

PATIENT
  Age: 29770 Day
  Sex: Female
  Weight: 70 kg

DRUGS (1)
  1. ESOMEPRAZOLE SODIUM [Suspect]
     Active Substance: ESOMEPRAZOLE SODIUM
     Indication: Upper gastrointestinal haemorrhage
     Route: 042
     Dates: start: 20220813, end: 20220817

REACTIONS (8)
  - Delirium [Recovered/Resolved]
  - Hypoxic-ischaemic encephalopathy [Recovered/Resolved]
  - Speech disorder [Recovered/Resolved]
  - Decreased nasolabial fold [Recovered/Resolved]
  - Tongue paralysis [Recovered/Resolved]
  - Disorientation [Recovered/Resolved]
  - Muscular weakness [Recovered/Resolved]
  - Disorientation [Recovered/Resolved]

NARRATIVE: CASE EVENT DATE: 20220816
